FAERS Safety Report 19469707 (Version 1)
Quarter: 2021Q2

REPORT INFORMATION
  Report Type: Spontaneous
  Country: PL (occurrence: PL)
  Receive Date: 20210628
  Receipt Date: 20210628
  Transmission Date: 20210717
  Serious: Yes (Other)
  Sender: FDA-Public Use
  Company Number: PL-GLAXOSMITHKLINE-PLCH2021039601

PATIENT
  Age: 36 Year
  Sex: Female

DRUGS (9)
  1. CALCIUM [Suspect]
     Active Substance: CALCIUM
     Indication: BREAST CANCER METASTATIC
     Dosage: UNK
     Route: 065
     Dates: start: 20200924
  2. KISQALI [Suspect]
     Active Substance: RIBOCICLIB
     Dosage: 400 MG, QD (DAILY DOSE)
     Route: 065
     Dates: start: 20210527
  3. GOSERELIN [Concomitant]
     Active Substance: GOSERELIN
     Indication: PRODUCT USED FOR UNKNOWN INDICATION
     Dosage: 3.6 MG, EVENRY 28 DAYS
     Route: 058
  4. KISQALI [Suspect]
     Active Substance: RIBOCICLIB
     Indication: BREAST CANCER METASTATIC
     Dosage: 600 MG, QD (3X200MG) (DAYS 1?21 PLUS 7?DAY BREAK
     Route: 065
     Dates: start: 20200924
  5. ERGOCALCIFEROL (VITAMIN D) [Suspect]
     Active Substance: ERGOCALCIFEROL
     Indication: BREAST CANCER METASTATIC
     Dosage: UNK
     Route: 065
     Dates: start: 20200924
  6. ZOLEDRONIC ACID [Suspect]
     Active Substance: ZOLEDRONIC ACID
     Indication: BREAST CANCER METASTATIC
     Dosage: 4 MG (EVERY 28 DAYS)
     Route: 065
     Dates: start: 20200924
  7. LETROZOLE. [Concomitant]
     Active Substance: LETROZOLE
     Indication: PRODUCT USED FOR UNKNOWN INDICATION
     Dosage: 2.5 MG, QD (1X1)
     Route: 065
  8. DICLAC [Suspect]
     Active Substance: DICLOFENAC
     Indication: BREAST CANCER METASTATIC
     Dosage: 75 MG
     Route: 048
     Dates: start: 20200924
  9. TRAMAL [Concomitant]
     Active Substance: TRAMADOL
     Indication: PRODUCT USED FOR UNKNOWN INDICATION
     Dosage: 50?100 DROPS IF NEEDED
     Route: 065

REACTIONS (5)
  - Neutropenia [Unknown]
  - Asthenia [Not Recovered/Not Resolved]
  - Musculoskeletal chest pain [Unknown]
  - Spinal pain [Unknown]
  - Depressed mood [Unknown]

NARRATIVE: CASE EVENT DATE: 20201106
